FAERS Safety Report 15058514 (Version 1)
Quarter: 2018Q2

REPORT INFORMATION
  Report Type: Spontaneous
  Country: IT (occurrence: IT)
  Receive Date: 20180625
  Receipt Date: 20180625
  Transmission Date: 20180711
  Serious: Yes (Other)
  Sender: FDA-Public Use
  Company Number: PHHY2018IT028273

PATIENT
  Age: 70 Year
  Sex: Female

DRUGS (2)
  1. PACLITAXEL. [Suspect]
     Active Substance: PACLITAXEL
     Indication: BREAST CANCER METASTATIC
     Dosage: 90 MG/M2, CYCLIC
     Route: 065
     Dates: start: 201603, end: 201610
  2. AVASTIN [Suspect]
     Active Substance: BEVACIZUMAB
     Indication: BREAST CANCER METASTATIC
     Dosage: 10 MG/KG, Q2W (EVERY 14 DAYS)
     Route: 042
     Dates: start: 201603

REACTIONS (5)
  - Leukopenia [Unknown]
  - Neutropenia [Unknown]
  - Paraesthesia [Unknown]
  - Dysaesthesia [Unknown]
  - Blood pressure increased [Unknown]

NARRATIVE: CASE EVENT DATE: 201610
